FAERS Safety Report 24782184 (Version 3)
Quarter: 2025Q1

REPORT INFORMATION
  Report Type: Spontaneous
  Country: KR (occurrence: KR)
  Receive Date: 20241227
  Receipt Date: 20250113
  Transmission Date: 20250409
  Serious: Yes (Other)
  Sender: MYLAN
  Company Number: KR-MYLANLABS-2024M1113796

PATIENT
  Sex: Male

DRUGS (4)
  1. XANAX [Suspect]
     Active Substance: ALPRAZOLAM
     Indication: Sleep disorder
     Dosage: 0.25 MILLIGRAM, BID (0.5 MG TABLET)
     Route: 065
  2. XANAX [Suspect]
     Active Substance: ALPRAZOLAM
     Dosage: 0.5 MILLIGRAM, QD
     Route: 065
  3. XANAX [Suspect]
     Active Substance: ALPRAZOLAM
     Dosage: 1.5 MILLIGRAM, QD
     Route: 065
  4. Myungin amitriptyline hcl [Concomitant]
     Dosage: 5 MILLIGRAM, QD (10 MG, HALF A TABLE)
     Route: 065

REACTIONS (11)
  - Sialoadenitis [Not Recovered/Not Resolved]
  - Arthralgia [Recovered/Resolved]
  - Back pain [Unknown]
  - Neck pain [Unknown]
  - Tendonitis [Unknown]
  - Facial pain [Unknown]
  - Muscle tension dysphonia [Unknown]
  - Pain in extremity [Unknown]
  - Off label use [Unknown]
  - Drug intolerance [Unknown]
  - Wrong technique in product usage process [Unknown]

NARRATIVE: CASE EVENT DATE: 20230201
